FAERS Safety Report 6640801-2 (Version None)
Quarter: 2010Q1

REPORT INFORMATION
  Report Type: 
  Country: None (occurrence: None)
  Receive Date: 20100318
  Receipt Date: 20100315
  Transmission Date: 20100710
  Serious: Yes (Hospitalization)
  Sender: FDA-Public Use
  Company Number: US-ELI_LILLY_AND_COMPANY-US201003004047

PATIENT
  Sex: Female

DRUGS (3)
  1. HUMULIN 70/30 [Suspect]
     Indication: DIABETES MELLITUS
  2. BYETTA [Concomitant]
     Indication: DIABETES MELLITUS
     Dosage: 5 UG, 2/D
     Dates: start: 20080101
  3. BYETTA [Concomitant]
     Dosage: 10 UG, 2/D

REACTIONS (1)
  - CARDIAC DISORDER [None]
